FAERS Safety Report 22370901 (Version 1)
Quarter: 2023Q2

REPORT INFORMATION
  Report Type: Spontaneous
  Country: US (occurrence: US)
  Receive Date: 20230526
  Receipt Date: 20230526
  Transmission Date: 20230721
  Serious: No
  Sender: FDA-Public Use
  Company Number: US-UNITED THERAPEUTICS-UNT-2023-009671

PATIENT
  Age: 55 Year
  Sex: Female
  Weight: 74.83 kg

DRUGS (5)
  1. REMODULIN [Suspect]
     Active Substance: TREPROSTINIL
     Indication: Pulmonary arterial hypertension
     Dosage: 0.01375 ?G/KG, CONTINUING (SELF-FILL WITH 2.4ML PER CASSETTE AT THE PUMP RATE OF 26 MCL PER HOUR)
     Route: 058
  2. REMODULIN [Suspect]
     Active Substance: TREPROSTINIL
     Dosage: 0.019 ?G/KG, CONTINUING (SELF FILL CASSETTE WITH 3 ML; RATE OF 36 MCL/HOUR)
     Route: 058
  3. REMODULIN [Suspect]
     Active Substance: TREPROSTINIL
     Dosage: UNK, CONTINUING
     Route: 058
     Dates: start: 20230321
  4. UPTRAVI [Concomitant]
     Active Substance: SELEXIPAG
     Indication: Product used for unknown indication
     Dosage: UNK
     Route: 065
  5. SILDENAFIL [Concomitant]
     Active Substance: SILDENAFIL
     Indication: Product used for unknown indication
     Dosage: UNK
     Route: 065

REACTIONS (2)
  - Infusion site pain [Unknown]
  - Infusion site infection [Recovered/Resolved]

NARRATIVE: CASE EVENT DATE: 20230301
